FAERS Safety Report 7442761-3 (Version None)
Quarter: 2011Q2

REPORT INFORMATION
  Report Type: 
  Country: None (occurrence: None)
  Receive Date: 20110419
  Receipt Date: 20110405
  Transmission Date: 20111010
  Serious: Yes (Other)
  Sender: FDA-Public Use
  Company Number: RU-1184649

PATIENT
  Age: 83 Year
  Sex: Male

DRUGS (3)
  1. QUINAX [Concomitant]
  2. SYMBICORT [Concomitant]
  3. BETOPTIC [Suspect]
     Dosage: (OPHTHALMIC)
     Route: 047
     Dates: start: 20080101

REACTIONS (1)
  - ASPHYXIA [None]
